FAERS Safety Report 19763861 (Version 4)
Quarter: 2021Q4

REPORT INFORMATION
  Report Type: Spontaneous
  Country: CH (occurrence: CH)
  Receive Date: 20210830
  Receipt Date: 20211229
  Transmission Date: 20220304
  Serious: Yes (Hospitalization, Other)
  Sender: FDA-Public Use
  Company Number: CH-BRISTOL-MYERS SQUIBB COMPANY-BMS-2021-083741

PATIENT
  Age: 37 Year
  Sex: Male

DRUGS (3)
  1. NIVOLUMAB [Suspect]
     Active Substance: NIVOLUMAB
     Indication: Malignant melanoma
     Dosage: 1 MILLIGRAM/KILOGRAM
     Route: 065
     Dates: start: 20201030, end: 20210111
  2. IPILIMUMAB [Suspect]
     Active Substance: IPILIMUMAB
     Indication: Malignant melanoma
     Dosage: 3 MILLIGRAM/KILOGRAM
     Route: 065
     Dates: start: 20201030, end: 20210111
  3. METAMIZOLE [Suspect]
     Active Substance: METAMIZOLE
     Indication: Spinal pain
     Dosage: 500 MG 2-2-2-2  FOR 8 DAYS
     Route: 065

REACTIONS (15)
  - Pyrexia [Unknown]
  - Headache [Unknown]
  - Malaise [Unknown]
  - Nausea [Unknown]
  - Urinary tract infection [Unknown]
  - Spinal pain [Unknown]
  - Immune-mediated hepatitis [Unknown]
  - Neutropenia [Unknown]
  - Colitis [Unknown]
  - Pancreatitis [Unknown]
  - Rash maculo-papular [Unknown]
  - Fatigue [Unknown]
  - Diarrhoea [Unknown]
  - Aspartate aminotransferase increased [Unknown]
  - Alanine aminotransferase increased [Unknown]

NARRATIVE: CASE EVENT DATE: 20201030
